FAERS Safety Report 13577498 (Version 1)
Quarter: 2017Q2

REPORT INFORMATION
  Report Type: Spontaneous
  Country: US (occurrence: US)
  Receive Date: 20170524
  Receipt Date: 20170524
  Transmission Date: 20170830
  Serious: No
  Sender: FDA-Public Use
  Company Number: None

PATIENT
  Age: 31 Year
  Sex: Female

DRUGS (1)
  1. IMATINIB MES TAB 100MG [Suspect]
     Active Substance: IMATINIB MESYLATE

REACTIONS (4)
  - Dyspepsia [None]
  - Abdominal pain upper [None]
  - Throat irritation [None]
  - Vomiting [None]

NARRATIVE: CASE EVENT DATE: 20170228
